FAERS Safety Report 19894673 (Version 1)
Quarter: 2021Q3

REPORT INFORMATION
  Report Type: Spontaneous
  Country: US (occurrence: US)
  Receive Date: 20210928
  Receipt Date: 20210928
  Transmission Date: 20211014
  Serious: Yes (Life-Threatening)
  Sender: FDA-Public Use
  Company Number: None

PATIENT
  Age: 57 Year
  Sex: Female
  Weight: 47.63 kg

DRUGS (8)
  1. PRAVASTATIN. [Concomitant]
     Active Substance: PRAVASTATIN
  2. HORIZANT 600 MG [Concomitant]
  3. POTASSIUM CHLORIDE. [Concomitant]
     Active Substance: POTASSIUM CHLORIDE
  4. MIDODRINE [Concomitant]
     Active Substance: MIDODRINE
  5. DAYVIGO [Suspect]
     Active Substance: LEMBOREXANT
     Indication: INSOMNIA
     Dosage: ?          QUANTITY:5 MG MILLIGRAM(S);OTHER FREQUENCY:BEDTIME ;?
     Route: 048
  6. FLUDROCORTISONE [Concomitant]
     Active Substance: FLUDROCORTISONE
  7. VIT D [Concomitant]
     Active Substance: VITAMIN D NOS
  8. ASPIRIN 81 MG [Concomitant]
     Active Substance: ASPIRIN

REACTIONS (3)
  - Loss of consciousness [None]
  - Fall [None]
  - Somnambulism [None]

NARRATIVE: CASE EVENT DATE: 20210819
